FAERS Safety Report 12134909 (Version 1)
Quarter: 2016Q1

REPORT INFORMATION
  Report Type: Report from Study
  Country: RO (occurrence: RO)
  Receive Date: 20160301
  Receipt Date: 20160301
  Transmission Date: 20160526
  Serious: Yes (Death)
  Sender: FDA-Public Use
  Company Number: RO-ABBVIE-16P-135-1569442-00

PATIENT
  Age: 79 Year
  Sex: Male

DRUGS (7)
  1. PREDUCTAL [Concomitant]
     Active Substance: TRIMETAZIDINE DIHYDROCHLORIDE
     Indication: MYOCARDIAL ISCHAEMIA
     Route: 048
     Dates: start: 20121128, end: 20160226
  2. MILURIT [Concomitant]
     Active Substance: ALLOPURINOL
     Indication: GOUT
     Route: 048
     Dates: start: 20121128, end: 20160226
  3. DUODOPA [Suspect]
     Active Substance: CARBIDOPA\LEVODOPA
     Indication: PARKINSON^S DISEASE
     Dosage: MD 9 ML, CR 4.7, ED 2.5/ 24 HOURS
     Route: 050
     Dates: start: 20121205, end: 20160226
  4. CONCOR [Concomitant]
     Active Substance: BISOPROLOL FUMARATE
     Indication: HYPERTENSION
     Route: 048
     Dates: start: 20121128, end: 20160226
  5. LEPONEX [Concomitant]
     Active Substance: CLOZAPINE
     Indication: DEMENTIA
     Route: 048
     Dates: start: 20121128, end: 20160226
  6. ASPENTER [Concomitant]
     Active Substance: ASPIRIN
     Indication: MYOCARDIAL ISCHAEMIA
     Route: 048
     Dates: start: 20121128, end: 20160226
  7. EXELON [Concomitant]
     Active Substance: RIVASTIGMINE TARTRATE
     Indication: DEMENTIA
     Route: 062
     Dates: start: 20121128, end: 20160226

REACTIONS (1)
  - Cardio-respiratory arrest [Fatal]

NARRATIVE: CASE EVENT DATE: 20160226
